FAERS Safety Report 24150866 (Version 1)
Quarter: 2024Q3

REPORT INFORMATION
  Report Type: Report from Study
  Country: CO (occurrence: CO)
  Receive Date: 20240730
  Receipt Date: 20240730
  Transmission Date: 20241016
  Serious: Yes (Disabling)
  Sender: ROCHE
  Company Number: CO-ROCHE-10000032752

PATIENT
  Age: 46 Year
  Sex: Female

DRUGS (1)
  1. PERJETA [Suspect]
     Active Substance: PERTUZUMAB
     Indication: Breast cancer
     Route: 065

REACTIONS (5)
  - Gait disturbance [Unknown]
  - Headache [Unknown]
  - Micturition disorder [Unknown]
  - Vomiting [Unknown]
  - Speech disorder [Unknown]
